FAERS Safety Report 25678065 (Version 2)
Quarter: 2025Q3

REPORT INFORMATION
  Report Type: Report from Study
  Country: US (occurrence: US)
  Receive Date: 20250813
  Receipt Date: 20250822
  Transmission Date: 20251021
  Serious: Yes (Hospitalization)
  Sender: SERVIER
  Company Number: US-SERVIER-S23013179

PATIENT

DRUGS (1)
  1. TIBSOVO [Suspect]
     Active Substance: IVOSIDENIB
     Indication: Astrocytoma
     Dosage: 500 MG, QD
     Route: 048
     Dates: start: 20231113

REACTIONS (4)
  - Spinal operation [Recovered/Resolved with Sequelae]
  - Hemiplegia [Unknown]
  - Off label use [Recovered/Resolved]
  - Malaise [Unknown]

NARRATIVE: CASE EVENT DATE: 20231113
